FAERS Safety Report 6244805-3 (Version None)
Quarter: 2009Q2

REPORT INFORMATION
  Report Type: 
  Country: None (occurrence: None)
  Receive Date: 20090625
  Receipt Date: 20090619
  Transmission Date: 20091009
  Serious: Yes (Hospitalization)
  Sender: FDA-Public Use
  Company Number: FR-WATSON-2009-04671

PATIENT
  Age: 35 Year
  Sex: Male

DRUGS (4)
  1. ETOPOSIDE [Suspect]
     Indication: HODGKIN'S DISEASE
     Dosage: UNK
     Route: 065
     Dates: start: 20070101
  2. CARMUSTINE [Suspect]
     Indication: HODGKIN'S DISEASE
     Dosage: UNK
     Route: 065
     Dates: start: 20070101
  3. ARACYTINE [Suspect]
     Indication: HODGKIN'S DISEASE
     Dosage: UNK
     Route: 065
     Dates: start: 20070101
  4. MELPHALAN HYDROCHLORIDE [Suspect]
     Indication: HODGKIN'S DISEASE
     Dosage: UNK
     Route: 065

REACTIONS (2)
  - GASTROINTESTINAL NECROSIS [None]
  - MUCOSAL INFLAMMATION [None]
